FAERS Safety Report 6287603-7 (Version None)
Quarter: 2009Q3

REPORT INFORMATION
  Report Type: 
  Country: None (occurrence: None)
  Receive Date: 20090727
  Receipt Date: 20090727
  Transmission Date: 20100115
  Serious: Yes (Hospitalization)
  Sender: FDA-Public Use
  Company Number: None

PATIENT
  Age: 55 Year
  Sex: Female
  Weight: 124.7392 kg

DRUGS (1)
  1. ATRIPLA [Suspect]
     Dosage: 600/200/300 ONCE PO QD PO DAILY AND ONGOING HAS NOT STOPPED RX
     Route: 048

REACTIONS (3)
  - ABDOMINAL PAIN UPPER [None]
  - CHEST DISCOMFORT [None]
  - PAIN [None]
